FAERS Safety Report 16936677 (Version 2)
Quarter: 2019Q4

REPORT INFORMATION
  Report Type: Report from Study
  Country: US (occurrence: US)
  Receive Date: 20191018
  Receipt Date: 20191129
  Transmission Date: 20200122
  Serious: Yes (Hospitalization)
  Sender: FDA-Public Use
  Company Number: US-TAIHO ONCOLOGY  INC-EU-2019-03434

PATIENT
  Age: 57 Year
  Sex: Male

DRUGS (20)
  1. METFORMIN [Concomitant]
     Active Substance: METFORMIN HYDROCHLORIDE
     Dosage: NI
  2. STIVARGA [Concomitant]
     Active Substance: REGORAFENIB
     Dosage: NI
  3. CIPRO [Concomitant]
     Active Substance: CIPROFLOXACIN HYDROCHLORIDE
     Dosage: NI
  4. SPIRONOLACTONE. [Concomitant]
     Active Substance: SPIRONOLACTONE
     Dosage: NI
  5. MORPHINE [Concomitant]
     Active Substance: MORPHINE
     Dosage: NI
  6. AMOXICILLIN. [Concomitant]
     Active Substance: AMOXICILLIN
     Dosage: NI
  7. FLUCONAZOLE. [Concomitant]
     Active Substance: FLUCONAZOLE
     Dosage: NI
  8. LONSURF [Suspect]
     Active Substance: TIPIRACIL HYDROCHLORIDE\TRIFLURIDINE
     Indication: RECTAL CANCER
     Dosage: CURRENT CYCLE 1
     Route: 048
     Dates: start: 20191004, end: 201910
  9. COMPAZINE [Concomitant]
     Active Substance: PROCHLORPERAZINE MALEATE
     Dosage: NI
  10. DEXAMETHASONE. [Concomitant]
     Active Substance: DEXAMETHASONE
     Dosage: NI
  11. FLAGYL [Concomitant]
     Active Substance: METRONIDAZOLE\METRONIDAZOLE HYDROCHLORIDE
     Dosage: NI
  12. GLUTAMINE [Concomitant]
     Active Substance: GLUTAMINE
     Dosage: NI
  13. MESALAMINE. [Concomitant]
     Active Substance: MESALAMINE
     Dosage: NI
  14. TRAMADOL. [Concomitant]
     Active Substance: TRAMADOL
     Dosage: NI
  15. FEROSUL [Concomitant]
     Active Substance: FERROUS SULFATE
     Dosage: NI
  16. HYDROCO/APAP [Concomitant]
     Active Substance: ACETAMINOPHEN\HYDROCODONE
     Dosage: NI
  17. OXYCODONE [Concomitant]
     Active Substance: OXYCODONE
     Dosage: NI
  18. LIDO/PRILOCN [Concomitant]
     Dosage: NI
  19. MEGESTROL [Concomitant]
     Active Substance: MEGESTROL
     Dosage: NI
  20. ZOFRAN [Concomitant]
     Active Substance: ONDANSETRON HYDROCHLORIDE
     Dosage: NI

REACTIONS (1)
  - Gastritis [Not Recovered/Not Resolved]

NARRATIVE: CASE EVENT DATE: 20191008
